FAERS Safety Report 25483541 (Version 1)
Quarter: 2025Q2

REPORT INFORMATION
  Report Type: Spontaneous
  Country: CN (occurrence: CN)
  Receive Date: 20250626
  Receipt Date: 20250626
  Transmission Date: 20250716
  Serious: Yes (Other)
  Sender: BAYER HEALTHCARE PHARMACEUTICALS INC.
  Company Number: CN-BAYER-2025A083721

PATIENT
  Age: 72 Year
  Sex: Male

DRUGS (1)
  1. AVELOX [Suspect]
     Active Substance: MOXIFLOXACIN HYDROCHLORIDE
     Indication: Pneumonia
     Dosage: 0.4 G, QD
     Route: 041
     Dates: start: 20250504, end: 20250504

REACTIONS (7)
  - Muscle twitching [Recovering/Resolving]
  - Oxygen saturation decreased [Recovered/Resolved]
  - Dyspnoea [None]
  - Trismus [Recovered/Resolved]
  - Eye movement disorder [Recovered/Resolved]
  - Vomiting [None]
  - Heart rate increased [Recovered/Resolved]

NARRATIVE: CASE EVENT DATE: 20250504
